FAERS Safety Report 4551856-3 (Version None)
Quarter: 2005Q1

REPORT INFORMATION
  Report Type: 
  Country: None (occurrence: None)
  Receive Date: 20050111
  Receipt Date: 20041231
  Transmission Date: 20050727
  Serious: Yes (Hospitalization)
  Sender: FDA-Public Use
  Company Number: 6012412

PATIENT
  Age: 42 Year
  Sex: Female

DRUGS (9)
  1. BISOPROLOL FUMARATE [Suspect]
     Dosage: ORAL
     Route: 048
     Dates: start: 20040315
  2. ATHYMIL (30 MG, TABLETS) (MIANSERIN HYDROCHLORIDE) [Suspect]
     Dosage: 30 MG, (30 MG, 1 IN 1 D), ORAL
     Route: 048
     Dates: start: 20020615, end: 20041207
  3. ATHYMIL (30 MG, TABLETS) (MIANSERIN HYDROCHLORIDE) [Suspect]
     Dosage: 30 MG, (30 MG, 1 IN 1 D), ORAL
     Route: 048
     Dates: start: 20020615
  4. AMLODIPINE BESYLATE [Suspect]
     Dosage: 5 MG, (5 MG, 1 IN 1 D), ORAL
     Route: 048
     Dates: start: 20030315
  5. COZAAR [Suspect]
     Dosage: 50 MG (50 MG, 1 IN 1 D), ORAL
     Route: 048
     Dates: start: 20040615
  6. PROGRAF [Suspect]
     Dosage: 1.5 MG/2 PER DAY, ORAL
     Route: 048
     Dates: start: 20030315
  7. CELCEPT (500 MG, TABLETS) MYCOPHENOLATE MOFETIL) [Suspect]
     Dosage: 1000 MG (500 MG, 2 IN 1 D), ORAL
     Route: 048
     Dates: start: 20030315
  8. ARANESP [Concomitant]
  9. ALDACTONE [Concomitant]

REACTIONS (3)
  - EYELID OEDEMA [None]
  - FACE OEDEMA [None]
  - PRURITUS [None]
